FAERS Safety Report 7795278-0 (Version None)
Quarter: 2011Q4

REPORT INFORMATION
  Report Type: 
  Country: None (occurrence: None)
  Receive Date: 20111004
  Receipt Date: 20110923
  Transmission Date: 20120403
  Serious: Yes (Other)
  Sender: FDA-Public Use
  Company Number: PHHY2011AU53917

PATIENT
  Sex: Female

DRUGS (1)
  1. GLEEVEC [Suspect]
     Indication: CHRONIC MYELOID LEUKAEMIA
     Dosage: 600 MG, DAILY
     Route: 048

REACTIONS (6)
  - HEADACHE [None]
  - DIARRHOEA [None]
  - HYPOAESTHESIA [None]
  - CONSTIPATION [None]
  - PAIN IN EXTREMITY [None]
  - BLISTER [None]
